FAERS Safety Report 13466713 (Version 1)
Quarter: 2017Q2

REPORT INFORMATION
  Report Type: Spontaneous
  Country: US (occurrence: US)
  Receive Date: 20170420
  Receipt Date: 20170420
  Transmission Date: 20170830
  Serious: Yes (Hospitalization)
  Sender: FDA-Public Use
  Company Number: None

PATIENT
  Sex: Female

DRUGS (1)
  1. CAPECITABINE 500 MG ACCORD [Suspect]
     Active Substance: CAPECITABINE
     Dosage: 500 MG DAILY FOR 7 DAYS THEN OFF FOR 7 DAYS PO
     Route: 048
     Dates: start: 20161119, end: 20170330

REACTIONS (5)
  - Headache [None]
  - Skin ulcer [None]
  - Wound [None]
  - Abdominal discomfort [None]
  - Skin exfoliation [None]
